FAERS Safety Report 5355427-0 (Version None)
Quarter: 2007Q2

REPORT INFORMATION
  Report Type: 
  Country: None (occurrence: None)
  Receive Date: 20070611
  Receipt Date: 20070611
  Transmission Date: 20071010
  Serious: Yes (Hospitalization)
  Sender: FDA-Public Use
  Company Number: None

PATIENT
  Age: 57 Year
  Sex: Male
  Weight: 131.9967 kg

DRUGS (1)
  1. NAFCILLIN SODIUM [Suspect]
     Indication: INFECTION
     Dosage: 12GM 21ML/HR IV
     Route: 042

REACTIONS (1)
  - THROMBOCYTOPENIA [None]
